FAERS Safety Report 23105139 (Version 1)
Quarter: 2023Q4

REPORT INFORMATION
  Report Type: Spontaneous
  Country: CZ (occurrence: CZ)
  Receive Date: 20231025
  Receipt Date: 20231025
  Transmission Date: 20240110
  Serious: Yes (Life-Threatening, Other)
  Sender: FDA-Public Use
  Company Number: None

PATIENT
  Age: 47 Year
  Sex: Female
  Weight: 67.5 kg

DRUGS (3)
  1. CARBOPLATIN [Suspect]
     Active Substance: CARBOPLATIN
     Indication: Breast cancer
     Dosage: IN TOTAL 3 CYCLES, ONE CYCLE PER WEEK, FURTHER APPLICATION WAS CURRENTLY STOPPED
     Dates: start: 20230901, end: 20230915
  2. PEMBROLIZUMAB [Suspect]
     Active Substance: PEMBROLIZUMAB
     Indication: Breast cancer
     Dosage: APPLIED ONCE, THE NEXT APPLICATIONS DEPENDS ON THE EFFECT OF CORTICOSTEROIDS.
     Dates: start: 20230901, end: 20230901
  3. PACLITAXEL [Suspect]
     Active Substance: PACLITAXEL
     Indication: Breast cancer
     Dosage: IN TOTAL 3 CYCLES, ON CYCLE PER WEEK, FURTHER APPLICATION IS CURRENTLY STOPPED.
     Dates: start: 20230901, end: 20230915

REACTIONS (2)
  - Hepatic failure [Unknown]
  - Drug-induced liver injury [Unknown]

NARRATIVE: CASE EVENT DATE: 20230922
